FAERS Safety Report 8360435-1 (Version None)
Quarter: 2012Q2

REPORT INFORMATION
  Report Type: 
  Country: None (occurrence: None)
  Receive Date: 20120515
  Receipt Date: 20120509
  Transmission Date: 20120825
  Serious: Yes (Other)
  Sender: FDA-Public Use
  Company Number: FR-PFIZER INC-2012112865

PATIENT
  Age: 29 Year
  Sex: Female

DRUGS (15)
  1. ZYVOX [Suspect]
     Indication: SEPSIS
     Dosage: UNK
     Dates: start: 20111107, end: 20111121
  2. BRICANYL [Concomitant]
  3. VENTOLIN [Concomitant]
  4. ATROVENT [Concomitant]
  5. PIPERACILLIN [Concomitant]
     Indication: SEPSIS
     Dosage: UNK
     Dates: start: 20111121, end: 20111127
  6. ZYVOX [Suspect]
     Indication: BACTERAEMIA
     Dosage: UNK
     Route: 042
     Dates: start: 20111212, end: 20111213
  7. TAZOBACTAM [Concomitant]
     Indication: SEPSIS
     Dosage: UNK
     Dates: start: 20111107, end: 20111121
  8. FORADIL [Concomitant]
  9. AMIKACINE ^ION^ [Concomitant]
     Indication: SEPSIS
     Dosage: UNK
     Dates: start: 20111107, end: 20111121
  10. PULMICORT [Concomitant]
  11. POTASSIUM CHLORIDE [Concomitant]
  12. SINGULAIR [Concomitant]
  13. CACIT D3 [Concomitant]
  14. ZOLPIDEM [Concomitant]
  15. AUGMENTIN [Concomitant]
     Indication: LUNG DISORDER
     Dosage: UNK
     Dates: start: 20111028

REACTIONS (1)
  - ACUTE GENERALISED EXANTHEMATOUS PUSTULOSIS [None]
